FAERS Safety Report 25325905 (Version 1)
Quarter: 2025Q2

REPORT INFORMATION
  Report Type: Spontaneous
  Country: US (occurrence: None)
  Receive Date: 20250516
  Receipt Date: 20250516
  Transmission Date: 20250716
  Serious: No
  Sender: FDA-CTU
  Company Number: None

PATIENT
  Age: 29 Year
  Sex: Female
  Weight: 117 kg

DRUGS (8)
  1. QELBREE [Suspect]
     Active Substance: VILOXAZINE HYDROCHLORIDE
     Indication: Attention deficit hyperactivity disorder
     Dosage: FREQUENCY : DAILY;?
     Route: 048
  2. STRATTERA [Suspect]
     Active Substance: ATOMOXETINE HYDROCHLORIDE
  3. Fluoxetine (Prozac) 60 mg [Concomitant]
  4. WELLBUTRIN [Concomitant]
     Active Substance: BUPROPION HYDROCHLORIDE
  5. Cyproheptadine 4 mg [Concomitant]
  6. Prazosin 1 mg [Concomitant]
  7. Clonazepam (Klonopin) as needed for anxiety [Concomitant]
  8. Propranolol as needed [Concomitant]

REACTIONS (5)
  - Headache [None]
  - Dyspepsia [None]
  - Therapy cessation [None]
  - Anal incontinence [None]
  - Drug ineffective [None]

NARRATIVE: CASE EVENT DATE: 20240322
